FAERS Safety Report 13977252 (Version 1)
Quarter: 2017Q3

REPORT INFORMATION
  Report Type: Spontaneous
  Country: US (occurrence: US)
  Receive Date: 20170915
  Receipt Date: 20170915
  Transmission Date: 20171128
  Serious: No
  Sender: FDA-Public Use
  Company Number: US-ROCHE-675801

PATIENT
  Sex: Female

DRUGS (1)
  1. HERCEPTIN [Suspect]
     Active Substance: TRASTUZUMAB
     Indication: BREAST CANCER METASTATIC
     Dosage: ONE DOSE GIVEN. FORM WAS REPRTED AS INFUSION.
     Route: 065

REACTIONS (2)
  - Flushing [Recovered/Resolved]
  - Rash [Recovered/Resolved]
